FAERS Safety Report 6017737-3 (Version None)
Quarter: 2008Q4

REPORT INFORMATION
  Report Type: 
  Country: None (occurrence: None)
  Receive Date: 20081217
  Receipt Date: 20081126
  Transmission Date: 20090506
  Serious: No
  Sender: FDA-Public Use
  Company Number: US-WYE-H07036908

PATIENT

DRUGS (1)
  1. TORISEL [Suspect]

REACTIONS (1)
  - EXTRAVASATION [None]
